FAERS Safety Report 8034299-X (Version None)
Quarter: 2012Q1

REPORT INFORMATION
  Report Type: 
  Country: None (occurrence: None)
  Receive Date: 20120110
  Receipt Date: 20120104
  Transmission Date: 20120608
  Serious: Yes (Hospitalization)
  Sender: FDA-Public Use
  Company Number: PHHY2012BR001269

PATIENT
  Age: 56 Year
  Sex: Female

DRUGS (2)
  1. FORMOTEROL FUMARATE [Suspect]
     Indication: EMPHYSEMA
  2. FORMOTEROL FUMARATE [Suspect]
     Indication: BRONCHITIS CHRONIC
     Dosage: 2 DF, BID (ONCE IN THE MORNING AND ONCE AT NIGHT)

REACTIONS (5)
  - DIVERTICULITIS [None]
  - ABDOMINAL DISTENSION [None]
  - GASTROINTESTINAL DISORDER [None]
  - PAIN [None]
  - WEIGHT INCREASED [None]
